FAERS Safety Report 5224066-4 (Version None)
Quarter: 2007Q1

REPORT INFORMATION
  Report Type: 
  Country: None (occurrence: None)
  Receive Date: 20070130
  Receipt Date: 20070116
  Transmission Date: 20070707
  Serious: Yes (Hospitalization)
  Sender: FDA-Public Use
  Company Number: US-AMGEN-US200326

PATIENT
  Sex: Female
  Weight: 54 kg

DRUGS (12)
  1. ETANERCEPT [Suspect]
     Indication: RHEUMATOID ARTHRITIS
     Route: 058
     Dates: start: 19970807, end: 20061109
  2. ASPIRIN [Concomitant]
     Route: 065
  3. HYDROCODONE BITARTRATE [Concomitant]
     Route: 065
  4. ZESTRIL [Concomitant]
     Route: 065
  5. VITAMIN CAP [Concomitant]
     Route: 065
  6. PROCARDIA [Concomitant]
     Route: 065
  7. DETROL [Concomitant]
     Route: 065
  8. CALCIUM WITH VITAMIN D [Concomitant]
     Route: 065
  9. NAPROXEN [Concomitant]
     Route: 065
  10. ADALAT [Concomitant]
     Route: 065
  11. HYDROCHLOROTHIAZIDE [Concomitant]
     Route: 065
  12. PEPCID [Concomitant]
     Route: 065

REACTIONS (3)
  - GLIOSARCOMA [None]
  - LUNG NEOPLASM MALIGNANT [None]
  - MENINGIOMA BENIGN [None]
